FAERS Safety Report 4280478-7 (Version None)
Quarter: 2004Q1

REPORT INFORMATION
  Report Type: 
  Country: None (occurrence: None)
  Receive Date: 20040128
  Receipt Date: 20040128
  Transmission Date: 20041129
  Serious: Yes (Other)
  Sender: FDA-Public Use
  Company Number: None

PATIENT

DRUGS (1)
  1. FE SO4 [Suspect]
     Indication: IRON DEFICIENCY ANAEMIA
     Dosage: 325 MG TID PO
     Route: 048

REACTIONS (1)
  - DRUG INEFFECTIVE [None]
